FAERS Safety Report 21758303 (Version 1)
Quarter: 2022Q4

REPORT INFORMATION
  Report Type: Spontaneous
  Country: US (occurrence: US)
  Receive Date: 20221221
  Receipt Date: 20221221
  Transmission Date: 20230113
  Serious: No
  Sender: FDA-Public Use
  Company Number: US-CELLTRION INC.-2022US005424

PATIENT

DRUGS (5)
  1. TRUXIMA [Suspect]
     Active Substance: RITUXIMAB-ABBS
     Indication: Rheumatoid arthritis
     Dosage: FIFTH INFUSION, 2 DOSES, EVERY 6 MONTHS FOR ONE COURSE
     Dates: start: 20220425
  2. TRAZODONE [Concomitant]
     Active Substance: TRAZODONE HYDROCHLORIDE
     Indication: Sleep disorder
  3. OXYCODONE [Concomitant]
     Active Substance: OXYCODONE
     Indication: Back pain
  4. SULFASALAZINE [Concomitant]
     Active Substance: SULFASALAZINE
     Indication: Rheumatoid arthritis
     Dosage: STARTED 3 WEEKS AGO
  5. MELOXICAM [Suspect]
     Active Substance: MELOXICAM
     Indication: Antiinflammatory therapy

REACTIONS (8)
  - Blood cholesterol abnormal [Unknown]
  - Feeling abnormal [Unknown]
  - Polydipsia [Unknown]
  - Poor quality sleep [Unknown]
  - Erythema [Not Recovered/Not Resolved]
  - Flushing [Not Recovered/Not Resolved]
  - Hot flush [Unknown]
  - Off label use [Unknown]

NARRATIVE: CASE EVENT DATE: 20220425
